FAERS Safety Report 10243804 (Version 1)
Quarter: 2014Q2

REPORT INFORMATION
  Report Type: Spontaneous
  Country: US (occurrence: US)
  Receive Date: 20140618
  Receipt Date: 20140618
  Transmission Date: 20141212
  Serious: Yes (Hospitalization)
  Sender: FDA-Public Use
  Company Number: US-BAYER-2014-089389

PATIENT
  Age: 33 Year
  Sex: Female
  Weight: 61.22 kg

DRUGS (4)
  1. YAZ [Suspect]
  2. YASMIN [Suspect]
  3. NEOMYCIN W/POLYMYCIN B/HYDROCORTISONE [Concomitant]
     Dosage: 1% SOLUTION, 10 ML, 2 DROPS INTO AFFECTED EAR 3 TIMES A DAY FOR 7 DAYS.
     Dates: start: 20060218
  4. LUNESTA [Concomitant]
     Dosage: UNK

REACTIONS (1)
  - Ovarian vein thrombosis [Recovering/Resolving]
